FAERS Safety Report 9215286 (Version 1)
Quarter: 2013Q2

REPORT INFORMATION
  Report Type: Spontaneous
  Country: US (occurrence: US)
  Receive Date: 20130405
  Receipt Date: 20130405
  Transmission Date: 20140414
  Serious: Yes (Hospitalization)
  Sender: FDA-Public Use
  Company Number: US-GILEAD-2013-0072455

PATIENT
  Sex: Male

DRUGS (5)
  1. LETAIRIS [Suspect]
     Indication: PRODUCT USED FOR UNKNOWN INDICATION
     Dosage: 5 MG, QD
     Route: 048
     Dates: start: 20121220
  2. LETAIRIS [Suspect]
     Dates: start: 20121221
  3. REVATIO [Concomitant]
  4. FLOLAN [Concomitant]
  5. SILDENAFIL [Concomitant]

REACTIONS (3)
  - Liver transplant [Unknown]
  - Renal failure [Unknown]
  - Fluid retention [Unknown]
